FAERS Safety Report 8797176 (Version 1)
Quarter: 2012Q4

REPORT INFORMATION
  Report Type: 
  Country: BR (occurrence: BR)
  Receive Date: 20120920
  Receipt Date: 20120920
  Transmission Date: 20130627
  Serious: Yes (Other)
  Sender: FDA-Public Use
  Company Number: BR-JNJFOC-20120906585

PATIENT
  Sex: Male

DRUGS (2)
  1. NICORETTE 2 MG GUM ORIGINAL [Suspect]
     Indication: SMOKING CESSATION THERAPY
     Route: 048
     Dates: start: 1992
  2. NICORETTE FRESHMINT 2MG GUM [Suspect]
     Indication: SMOKING CESSATION THERAPY
     Route: 048
     Dates: start: 1992

REACTIONS (2)
  - Nicotine dependence [Not Recovered/Not Resolved]
  - Intentional drug misuse [Unknown]
